FAERS Safety Report 5098243-X (Version None)
Quarter: 2006Q3

REPORT INFORMATION
  Report Type: 
  Country: None (occurrence: None)
  Receive Date: 20060906
  Receipt Date: 20060824
  Transmission Date: 20061208
  Serious: Yes (Hospitalization)
  Sender: FDA-Public Use
  Company Number: US-BRISTOL-MYERS SQUIBB COMPANY-13488549

PATIENT
  Age: 58 Year
  Sex: Male
  Weight: 66 kg

DRUGS (11)
  1. ERBITUX [Suspect]
     Indication: NEOPLASM MALIGNANT
     Dates: start: 20060817, end: 20060817
  2. CISPLATIN [Suspect]
     Indication: NEOPLASM MALIGNANT
     Dates: start: 20060725, end: 20060725
  3. RADIATION THERAPY [Suspect]
     Dates: start: 20060811, end: 20060811
  4. XANAX [Concomitant]
  5. DILAUDID [Concomitant]
  6. FENTANYL [Concomitant]
  7. LUNESTA [Concomitant]
  8. REGLAN [Concomitant]
  9. ZOFRAN [Concomitant]
  10. MAGNESIUM [Concomitant]
  11. POTASSIUM [Concomitant]

REACTIONS (3)
  - DEHYDRATION [None]
  - NAUSEA [None]
  - VOMITING [None]
